FAERS Safety Report 11128538 (Version 2)
Quarter: 2015Q2

REPORT INFORMATION
  Report Type: Report from Study
  Country: JP (occurrence: JP)
  Receive Date: 20150521
  Receipt Date: 20150521
  Transmission Date: 20150821
  Serious: Yes (Hospitalization, Other)
  Sender: FDA-Public Use
  Company Number: PHHY2012JP015906

PATIENT
  Age: 50 Year
  Sex: Male

DRUGS (52)
  1. NEORAL [Suspect]
     Active Substance: CYCLOSPORINE
     Dosage: 330 MG
     Route: 048
     Dates: start: 20110822, end: 20110822
  2. NEORAL [Suspect]
     Active Substance: CYCLOSPORINE
     Dosage: 300 MG
     Route: 048
     Dates: start: 20110825, end: 20110825
  3. NEORAL [Suspect]
     Active Substance: CYCLOSPORINE
     Dosage: 60 MG
     Route: 048
     Dates: start: 20120619, end: 20120720
  4. SIMULECT [Suspect]
     Active Substance: BASILIXIMAB
     Indication: IMMUNOSUPPRESSION
     Dosage: 20 MG
     Route: 042
     Dates: start: 20110816, end: 20110816
  5. SIMULECT [Suspect]
     Active Substance: BASILIXIMAB
     Dosage: 20 MG
     Route: 042
     Dates: start: 20110820, end: 20110820
  6. SIMULECT [Suspect]
     Active Substance: BASILIXIMAB
     Route: 042
     Dates: start: 20110820, end: 20110820
  7. SOLU-MEDROL [Suspect]
     Active Substance: METHYLPREDNISOLONE SODIUM SUCCINATE
     Dosage: 500 MG
     Route: 042
     Dates: start: 20120418, end: 20120420
  8. RITUXIMAB [Concomitant]
     Active Substance: RITUXIMAB
     Indication: PRODUCT USED FOR UNKNOWN INDICATION
     Route: 065
  9. BAKTAR [Concomitant]
     Active Substance: SULFAMETHOXAZOLE\TRIMETHOPRIM
     Dosage: 1 DF
     Route: 048
     Dates: start: 20110719
  10. BREDININ [Concomitant]
     Active Substance: MIZORIBINE
     Dosage: 100 MG
     Route: 048
  11. NEORAL [Suspect]
     Active Substance: CYCLOSPORINE
     Dosage: 250 MG
     Route: 048
     Dates: start: 20110826, end: 20110827
  12. NEORAL [Suspect]
     Active Substance: CYCLOSPORINE
     Route: 048
     Dates: start: 20110814, end: 20110815
  13. NEORAL [Suspect]
     Active Substance: CYCLOSPORINE
     Dosage: 330 MG, UNK
     Route: 048
     Dates: start: 20110822, end: 20120301
  14. NEORAL [Suspect]
     Active Substance: CYCLOSPORINE
     Dosage: 50 MG, UNK
     Route: 048
     Dates: start: 20120409, end: 20120720
  15. SIMULECT [Suspect]
     Active Substance: BASILIXIMAB
     Route: 042
     Dates: start: 20110816, end: 20110816
  16. PREDONINE [Suspect]
     Active Substance: PREDNISOLONE\PREDNISOLONE ACETATE\PREDNISOLONE SODIUM SUCCINATE
     Dosage: 40 MG
     Route: 048
     Dates: start: 20110824, end: 20110828
  17. CEFAMEZIN [Concomitant]
     Active Substance: CEFAZOLIN
     Dosage: 1000 MG
     Route: 042
     Dates: start: 20110816, end: 20110821
  18. BREDININ [Concomitant]
     Active Substance: MIZORIBINE
     Indication: RENAL TRANSPLANT
     Dosage: 200 MG
     Dates: start: 20120228
  19. ZANTAC [Concomitant]
     Active Substance: RANITIDINE HYDROCHLORIDE
     Dosage: 300 MG
     Route: 048
     Dates: start: 20110819
  20. CELLCEPT [Suspect]
     Active Substance: MYCOPHENOLATE MOFETIL\MYCOPHENOLATE MOFETIL HYDROCHLORIDE
     Dosage: 1000 MG
     Route: 048
     Dates: start: 20110915, end: 20120227
  21. SOLU-MEDROL [Suspect]
     Active Substance: METHYLPREDNISOLONE SODIUM SUCCINATE
     Dosage: 250 MG
     Route: 042
     Dates: start: 20120426, end: 20120428
  22. SPANIDIN [Suspect]
     Active Substance: GUSPERIMUS TRIHYDROCHLORIDE
     Indication: RENAL TRANSPLANT
     Dosage: 260 MG
     Route: 042
     Dates: end: 20120222
  23. NEORAL [Suspect]
     Active Substance: CYCLOSPORINE
     Dosage: 350 MG
     Route: 048
     Dates: start: 20110823, end: 20110823
  24. NEORAL [Suspect]
     Active Substance: CYCLOSPORINE
     Dosage: 180 MG
     Route: 048
     Dates: start: 20110904, end: 20110911
  25. NEORAL [Suspect]
     Active Substance: CYCLOSPORINE
     Dosage: 50 MG
     Route: 048
     Dates: start: 20120409, end: 20120424
  26. SOLU-MEDROL [Suspect]
     Active Substance: METHYLPREDNISOLONE SODIUM SUCCINATE
     Dosage: 250 MG
     Route: 042
     Dates: start: 20120518, end: 20120520
  27. PREDONINE [Suspect]
     Active Substance: PREDNISOLONE\PREDNISOLONE ACETATE\PREDNISOLONE SODIUM SUCCINATE
     Indication: RENAL TRANSPLANT
     Dosage: 50 MG
     Route: 048
     Dates: start: 20110819, end: 20110823
  28. PREDONINE [Suspect]
     Active Substance: PREDNISOLONE\PREDNISOLONE ACETATE\PREDNISOLONE SODIUM SUCCINATE
     Dosage: 20 MG
     Route: 048
     Dates: start: 20110903, end: 20110907
  29. PREDONINE [Suspect]
     Active Substance: PREDNISOLONE\PREDNISOLONE ACETATE\PREDNISOLONE SODIUM SUCCINATE
     Dosage: 10 MG
     Route: 048
     Dates: start: 20110908
  30. NEORAL [Suspect]
     Active Substance: CYCLOSPORINE
     Dosage: 120 MG
     Route: 048
     Dates: start: 20110929, end: 20111221
  31. CELLCEPT [Suspect]
     Active Substance: MYCOPHENOLATE MOFETIL\MYCOPHENOLATE MOFETIL HYDROCHLORIDE
     Indication: RENAL TRANSPLANT
     Dosage: 2000 MG
     Route: 048
     Dates: start: 20110817, end: 20110830
  32. SOLU-MEDROL [Suspect]
     Active Substance: METHYLPREDNISOLONE SODIUM SUCCINATE
     Dosage: 125 MG
     Route: 042
     Dates: start: 20110818, end: 20110818
  33. SANDIMMUNE [Concomitant]
     Active Substance: CYCLOSPORINE
     Indication: RENAL TRANSPLANT
     Dosage: 48 MG
     Route: 042
     Dates: start: 20110816, end: 20110821
  34. GAMMA-GLOBULIN [Concomitant]
     Active Substance: IMMUNE GLOBULIN NOS
     Indication: POLYOMAVIRUS-ASSOCIATED NEPHROPATHY
     Route: 065
  35. NEORAL [Suspect]
     Active Substance: CYCLOSPORINE
     Dosage: 200 MG
     Route: 048
     Dates: start: 20110828, end: 20110903
  36. NEORAL [Suspect]
     Active Substance: CYCLOSPORINE
     Dosage: 150 MG
     Route: 048
     Dates: start: 20110912, end: 20110928
  37. CELLCEPT [Suspect]
     Active Substance: MYCOPHENOLATE MOFETIL\MYCOPHENOLATE MOFETIL HYDROCHLORIDE
     Dosage: 1500 MG
     Route: 048
     Dates: start: 20110831, end: 20110914
  38. SOLU-MEDROL [Suspect]
     Active Substance: METHYLPREDNISOLONE SODIUM SUCCINATE
     Indication: RENAL TRANSPLANT
     Dosage: 625 MG
     Route: 042
     Dates: start: 20110816, end: 20110816
  39. MEROPEN [Concomitant]
     Active Substance: MEROPENEM
     Dosage: 1000 MG
     Route: 042
     Dates: start: 20110826, end: 20110903
  40. NEORAL [Suspect]
     Active Substance: CYCLOSPORINE
     Dosage: 320 MG
     Route: 048
     Dates: start: 20110824, end: 20110824
  41. NEORAL [Suspect]
     Active Substance: CYCLOSPORINE
     Dosage: 75 MG
     Route: 048
     Dates: start: 20120505, end: 20120618
  42. SOLU-MEDROL [Suspect]
     Active Substance: METHYLPREDNISOLONE SODIUM SUCCINATE
     Dosage: 250 MG
     Route: 042
     Dates: start: 20110817, end: 20110817
  43. SOLU-MEDROL [Suspect]
     Active Substance: METHYLPREDNISOLONE SODIUM SUCCINATE
     Dosage: 250 MG
     Route: 042
     Dates: start: 20120216, end: 20120218
  44. CEFZON [Concomitant]
     Active Substance: CEFDINIR
     Dosage: 200 MG
     Route: 048
     Dates: start: 20110817, end: 20110826
  45. BREDININ [Concomitant]
     Active Substance: MIZORIBINE
     Dosage: 50 MG
     Route: 048
     Dates: end: 20120705
  46. ZANTAC [Concomitant]
     Active Substance: RANITIDINE HYDROCHLORIDE
     Dosage: 200 MG
     Route: 042
     Dates: start: 20110816, end: 20110818
  47. CIDOFOVIR. [Concomitant]
     Active Substance: CIDOFOVIR
     Indication: POLYOMAVIRUS-ASSOCIATED NEPHROPATHY
     Route: 065
  48. NEORAL [Suspect]
     Active Substance: CYCLOSPORINE
     Indication: IMMUNOSUPPRESSION
     Dosage: 330 MG
     Route: 048
     Dates: start: 20110814, end: 20110815
  49. NEORAL [Suspect]
     Active Substance: CYCLOSPORINE
     Dosage: 100 MG
     Route: 048
     Dates: start: 20111222, end: 20120301
  50. NEORAL [Suspect]
     Active Substance: CYCLOSPORINE
     Dosage: 100 MG
     Route: 048
     Dates: start: 20120425, end: 20120504
  51. TACROLIMUS. [Suspect]
     Active Substance: TACROLIMUS
     Indication: IMMUNOSUPPRESSION
     Route: 065
  52. PREDONINE [Suspect]
     Active Substance: PREDNISOLONE\PREDNISOLONE ACETATE\PREDNISOLONE SODIUM SUCCINATE
     Dosage: 30 MG
     Route: 048
     Dates: start: 20110829, end: 20110902

REACTIONS (21)
  - Urinary tract infection [Recovered/Resolved]
  - Blister [Recovered/Resolved]
  - Chronic allograft nephropathy [Recovered/Resolved]
  - Cryptococcosis [Not Recovered/Not Resolved]
  - Skin warm [Not Recovered/Not Resolved]
  - Skin necrosis [Unknown]
  - Cellulitis [Not Recovered/Not Resolved]
  - Polyomavirus-associated nephropathy [Recovering/Resolving]
  - Pyrexia [Unknown]
  - Kidney transplant rejection [Recovered/Resolved]
  - Renal transplant failure [Not Recovered/Not Resolved]
  - Necrotising fasciitis [Not Recovered/Not Resolved]
  - Pain in extremity [Not Recovered/Not Resolved]
  - Skin lesion [Not Recovered/Not Resolved]
  - Pain [Not Recovered/Not Resolved]
  - Cytomegalovirus infection [Unknown]
  - Retinopathy [Unknown]
  - Hypertension [Recovering/Resolving]
  - Erythema [Not Recovered/Not Resolved]
  - Herpes zoster [Not Recovered/Not Resolved]
  - Benign prostatic hyperplasia [Recovering/Resolving]

NARRATIVE: CASE EVENT DATE: 20110826
